FAERS Safety Report 8678180 (Version 2)
Quarter: 2012Q4

REPORT INFORMATION
  Report Type: 
  Country: US (occurrence: US)
  Receive Date: 20120723
  Receipt Date: 20121101
  Transmission Date: 20130627
  Serious: No
  Sender: FDA-Public Use
  Company Number: US-ELI_LILLY_AND_COMPANY-US201207005076

PATIENT

DRUGS (1)
  1. HUMULIN REGULAR [Suspect]
     Dosage: UNK, unknown

REACTIONS (1)
  - No adverse event [Unknown]
